FAERS Safety Report 8793321 (Version 8)
Quarter: 2013Q4

REPORT INFORMATION
  Report Type: Spontaneous
  Country: US (occurrence: US)
  Receive Date: 20120918
  Receipt Date: 20131114
  Transmission Date: 20140711
  Serious: Yes (Other)
  Sender: FDA-Public Use
  Company Number: US-ASTRAZENECA-2012SE70584

PATIENT
  Age: 83 Year
  Sex: Female
  Weight: 54.4 kg

DRUGS (43)
  1. SYMBICORT PMDI [Suspect]
     Dosage: 80 MCG 4.5 MCG /INH 2 AEROSOL WITH ADAPTER BID
     Route: 055
     Dates: start: 20110817
  2. NEXIUM [Suspect]
     Indication: GASTROOESOPHAGEAL REFLUX DISEASE
     Route: 048
     Dates: start: 2008
  3. OMEPRAZOLE [Suspect]
     Route: 048
  4. PRILOSEC OTC [Suspect]
     Route: 048
  5. OTHER ANTACIDS [Suspect]
     Route: 065
  6. ADVAIR DISKUS [Concomitant]
     Dosage: 100 MCG-50 MCG, 1 POWDER BID
  7. ALDACTONE [Concomitant]
  8. ASPIRIN [Concomitant]
  9. CARVEDILOL [Concomitant]
  10. CLONIDINE HCL [Concomitant]
  11. COREG [Concomitant]
  12. DULERA [Concomitant]
     Dosage: 5 MCG-100 MCG/ 2 AEROSOL, BID
  13. DYNACIRC CR [Concomitant]
  14. HYDRALAZLNE HYDROCHLORIDE [Concomitant]
  15. IMURAN [Concomitant]
  16. INDERAL LA [Concomitant]
  17. IRON [Concomitant]
  18. KLONOPIN [Concomitant]
  19. LASIX [Concomitant]
     Indication: HYPERTENSION
     Route: 048
  20. PLAQUENIL [Concomitant]
  21. PLAQUENIL [Concomitant]
  22. PRISTIQ [Concomitant]
  23. PRISTIQ [Concomitant]
  24. PROZAC [Concomitant]
  25. TEKTURNA [Concomitant]
  26. TERAZOSIN HYDROCHLORIDE [Concomitant]
  27. VENTOLIN HFA [Concomitant]
     Dosage: 90 MCG/ AEROSOL WITH ADAPTER PRN
  28. VERAPAMIL HYDROCHLORIDE [Concomitant]
     Indication: HYPERTENSION
     Route: 048
  29. VERAPAMIL HYDROCHLORIDE [Concomitant]
     Indication: HYPERTENSION
  30. VITAMIN D [Concomitant]
     Dosage: 1000 UNITS 1 TABLET BID
  31. CARDURA [Concomitant]
  32. AMILORIDE [Concomitant]
  33. INDERAL [Concomitant]
  34. LEVSIN [Concomitant]
     Dosage: 0.125 MG 1 TABLET QID PRN
  35. BENADRYL [Concomitant]
     Indication: SLEEP DISORDER
     Route: 048
  36. DIOVAN [Concomitant]
     Indication: HYPERTENSION
     Route: 048
  37. FOLIC ACID [Concomitant]
     Route: 048
  38. GABAPENTIN [Concomitant]
     Indication: PAIN
     Route: 048
  39. ISORDIL [Concomitant]
     Indication: HYPERTENSION
     Route: 048
  40. PREDNISONE [Concomitant]
     Route: 048
  41. PREMARIN [Concomitant]
     Indication: HORMONE REPLACEMENT THERAPY
     Dosage: 0.625, DAILY
     Route: 048
  42. XANAX [Concomitant]
     Indication: ANXIETY
     Dosage: 0.5 DAILY
     Route: 048
  43. TRAMADOL [Concomitant]
     Indication: PAIN
     Route: 042

REACTIONS (9)
  - Intervertebral disc protrusion [Unknown]
  - Blood sodium decreased [Not Recovered/Not Resolved]
  - Abdominal discomfort [Unknown]
  - Candida infection [Unknown]
  - Adverse event [Unknown]
  - Malaise [Unknown]
  - Nausea [Unknown]
  - Thinking abnormal [Unknown]
  - Drug dose omission [Unknown]
